FAERS Safety Report 4436553-7 (Version None)
Quarter: 2004Q3

REPORT INFORMATION
  Report Type: 
  Country: None (occurrence: None)
  Receive Date: 20040830
  Receipt Date: 20040623
  Transmission Date: 20050211
  Serious: No
  Sender: FDA-Public Use
  Company Number: US-BRISTOL-MYERS SQUIBB COMPANY-12623278

PATIENT
  Age: 19 Year
  Sex: Female

DRUGS (3)
  1. ABILIFY [Suspect]
     Indication: OBSESSIVE-COMPULSIVE DISORDER
     Dosage: INITIATED AT 7.5 MG/DAY ONE MONTH AGO; INCREASED TO 10 MG/DAY WITHIN THE PAST 10 DAYS.
     Route: 048
  2. PROZAC [Concomitant]
     Dosage: TAKEN FOR A ^FEW YEARS^
  3. CONCERTA [Concomitant]
     Dosage: TAKEN FOR A ^FEW YEARS^

REACTIONS (1)
  - VITILIGO [None]
